FAERS Safety Report 14822102 (Version 5)
Quarter: 2018Q3

REPORT INFORMATION
  Report Type: Spontaneous
  Country: US (occurrence: US)
  Receive Date: 20180427
  Receipt Date: 20180723
  Transmission Date: 20181010
  Serious: Yes (Other)
  Sender: FDA-Public Use
  Company Number: US-PFIZER INC-2018170486

PATIENT
  Age: 51 Year
  Sex: Female
  Weight: 87.75 kg

DRUGS (3)
  1. XELJANZ XR [Suspect]
     Active Substance: TOFACITINIB CITRATE
     Indication: RHEUMATOID ARTHRITIS
     Dosage: 11 MG, 1X/DAY
     Route: 048
     Dates: start: 201804
  2. XELJANZ XR [Suspect]
     Active Substance: TOFACITINIB CITRATE
     Dosage: 11 MG, UNK
     Route: 048
  3. XELJANZ XR [Suspect]
     Active Substance: TOFACITINIB CITRATE
     Dosage: 11 MG, DAILY
     Route: 048
     Dates: start: 201804

REACTIONS (11)
  - Pain in extremity [Unknown]
  - Condition aggravated [Unknown]
  - Abdominal discomfort [Unknown]
  - Gastric ulcer [Unknown]
  - Gastric ulcer haemorrhage [Unknown]
  - Drug ineffective [Unknown]
  - Arthralgia [Unknown]
  - Gastric ulcer perforation [Unknown]
  - Diarrhoea [Unknown]
  - Feeling abnormal [Unknown]
  - Erythema [Unknown]

NARRATIVE: CASE EVENT DATE: 201804
